FAERS Safety Report 7353129-2 (Version None)
Quarter: 2011Q1

REPORT INFORMATION
  Report Type: 
  Country: None (occurrence: None)
  Receive Date: 20110315
  Receipt Date: 20110309
  Transmission Date: 20110831
  Serious: Yes (Other)
  Sender: FDA-Public Use
  Company Number: US-ABBOTT-11P-163-0710622-00

PATIENT
  Age: 63 Year
  Sex: Female
  Weight: 48.578 kg

DRUGS (2)
  1. SYNTHROID [Suspect]
     Indication: HYPOTHYROIDISM
     Dosage: 150 MICROGRAM DAILY
     Dates: start: 20110301
  2. SYNTHROID [Suspect]
     Dosage: 125 MICROGRAM DAILY
     Dates: end: 20110301

REACTIONS (4)
  - PANCREATIC CARCINOMA [None]
  - BLOOD THYROID STIMULATING HORMONE INCREASED [None]
  - ASTHENIA [None]
  - PANCREATIC INSUFFICIENCY [None]
